FAERS Safety Report 5168029-6 (Version None)
Quarter: 2006Q4

REPORT INFORMATION
  Report Type: 
  Country: None (occurrence: None)
  Receive Date: 20061208
  Receipt Date: 20060315
  Transmission Date: 20070319
  Serious: No
  Sender: FDA-Public Use
  Company Number: US-GLAXOSMITHKLINE-A0597694A

PATIENT
  Age: 53 Year
  Sex: Female

DRUGS (6)
  1. AVANDAMET [Suspect]
     Dosage: 1TAB TWICE PER DAY
     Route: 048
  2. AVANDIA [Suspect]
     Dosage: 4MG TWICE PER DAY
     Route: 048
  3. CEFTIN [Suspect]
     Indication: DRUG USE FOR UNKNOWN INDICATION
     Route: 048
  4. METFORMIN [Suspect]
     Dosage: 1000MG TWICE PER DAY
     Route: 048
  5. ZOLOFT [Concomitant]
  6. FLUID THERAPY (UNSPECIFIED) [Concomitant]
     Route: 048

REACTIONS (5)
  - CRYING [None]
  - LOCAL SWELLING [None]
  - SWELLING [None]
  - WEIGHT DECREASED [None]
  - WEIGHT INCREASED [None]
